FAERS Safety Report 21691469 (Version 1)
Quarter: 2022Q4

REPORT INFORMATION
  Report Type: Spontaneous
  Country: GB (occurrence: GB)
  Receive Date: 20221207
  Receipt Date: 20221207
  Transmission Date: 20230113
  Serious: Yes (Other)
  Sender: FDA-Public Use
  Company Number: GB-TEVA-2022-GB-2830276

PATIENT
  Sex: Female

DRUGS (1)
  1. RISPERDAL [Suspect]
     Active Substance: RISPERIDONE
     Indication: Product used for unknown indication
     Dosage: 0.25ML OF THE 1MG/ML
     Route: 065

REACTIONS (5)
  - Adverse event [Unknown]
  - Fall [Unknown]
  - Device use confusion [Unknown]
  - Refusal of treatment by patient [Unknown]
  - Incorrect dose administered [Unknown]
